FAERS Safety Report 7318681-1 (Version None)
Quarter: 2011Q1

REPORT INFORMATION
  Report Type: 
  Country: None (occurrence: None)
  Receive Date: 20110228
  Receipt Date: 20110216
  Transmission Date: 20110831
  Serious: Yes (Other)
  Sender: FDA-Public Use
  Company Number: US-JNJFOC-20110205915

PATIENT
  Age: 64 Year
  Sex: Male
  Weight: 83.01 kg

DRUGS (2)
  1. NEOSPORIN ORIGINAL OINTMENT [Suspect]
     Indication: SUTURE INSERTION
     Dosage: A DOT ON A Q-TIP ONCE A DAY
     Route: 061
  2. ALLEGRA [Concomitant]
     Indication: HYPERSENSITIVITY
     Route: 065

REACTIONS (6)
  - INSOMNIA [None]
  - PRURITUS [None]
  - ECZEMA [None]
  - EXPIRED DRUG ADMINISTERED [None]
  - PERFORMANCE STATUS DECREASED [None]
  - PAIN [None]
